FAERS Safety Report 10863306 (Version 2)
Quarter: 2015Q2

REPORT INFORMATION
  Report Type: Spontaneous
  Country: DE (occurrence: DE)
  Receive Date: 20150223
  Receipt Date: 20150622
  Transmission Date: 20150821
  Serious: Yes (Life-Threatening, Hospitalization, Other)
  Sender: FDA-Public Use
  Company Number: DE-ELI_LILLY_AND_COMPANY-DE201502005755

PATIENT
  Age: 64 Year
  Sex: Male

DRUGS (7)
  1. ELONTRIL [Concomitant]
     Active Substance: BUPROPION HYDROCHLORIDE
     Indication: PRODUCT USED FOR UNKNOWN INDICATION
     Dosage: 300 MG, UNKNOWN
     Route: 065
  2. CYMBALTA [Suspect]
     Active Substance: DULOXETINE HYDROCHLORIDE
     Indication: DEPRESSION
     Dosage: 120 MG, UNKNOWN
     Route: 048
  3. TRAMAL LONG [Suspect]
     Active Substance: TRAMADOL
     Indication: NECK PAIN
     Dosage: 100 MG, EACH EVENING
     Route: 065
     Dates: start: 20150203, end: 20150205
  4. CYMBALTA [Suspect]
     Active Substance: DULOXETINE HYDROCHLORIDE
     Indication: ANXIETY DISORDER
  5. LYRICA [Concomitant]
     Active Substance: PREGABALIN
     Indication: PRODUCT USED FOR UNKNOWN INDICATION
     Dosage: 200 MG, UNKNOWN
     Route: 065
  6. TRAMAL LONG [Suspect]
     Active Substance: TRAMADOL
     Indication: MUSCLE TIGHTNESS
     Dosage: 100 MG, EACH MORNING
     Route: 065
     Dates: start: 20150203, end: 20150205
  7. MIRTAZAPIN [Concomitant]
     Active Substance: MIRTAZAPINE
     Dosage: 15 MG, UNKNOWN
     Route: 065
     Dates: start: 201402

REACTIONS (13)
  - Multi-organ failure [Unknown]
  - Dependence on respirator [Not Recovered/Not Resolved]
  - Staphylococcal infection [Unknown]
  - Neck pain [Unknown]
  - Muscle tightness [Unknown]
  - Muscle spasms [Unknown]
  - Pneumonitis [Unknown]
  - Coma [Unknown]
  - Panic attack [Not Recovered/Not Resolved]
  - Blood pressure increased [Unknown]
  - Hallucination [Unknown]
  - Renal failure [Unknown]
  - Anxiety [Not Recovered/Not Resolved]

NARRATIVE: CASE EVENT DATE: 201501
